FAERS Safety Report 25190802 (Version 2)
Quarter: 2025Q2

REPORT INFORMATION
  Report Type: Spontaneous
  Country: US (occurrence: US)
  Receive Date: 20250411
  Receipt Date: 20250625
  Transmission Date: 20250716
  Serious: No
  Sender: CALLIDITAS THERAPEUTICS AB
  Company Number: US-Calliditas-2025CAL00916

PATIENT
  Age: 68 Year
  Sex: Female

DRUGS (1)
  1. TARPEYO [Suspect]
     Active Substance: BUDESONIDE
     Indication: IgA nephropathy
     Dosage: TAKE 4 CAPSULES (16 MG) BY MOUTH ONCE DAILY 1 HOUR BEFORE BREAKFAST
     Route: 048
     Dates: start: 20250314

REACTIONS (7)
  - Dyspepsia [Not Recovered/Not Resolved]
  - Dyspepsia [Not Recovered/Not Resolved]
  - Chest pain [Not Recovered/Not Resolved]
  - Initial insomnia [Not Recovered/Not Resolved]
  - Insomnia [Recovered/Resolved]
  - Dizziness [Recovered/Resolved]
  - Tachycardia [Recovered/Resolved]
